FAERS Safety Report 9746250 (Version 2)
Quarter: 2013Q4

REPORT INFORMATION
  Report Type: Spontaneous
  Country: US (occurrence: US)
  Receive Date: 20131211
  Receipt Date: 20131230
  Transmission Date: 20140711
  Serious: Yes (Other)
  Sender: FDA-Public Use
  Company Number: US-B.I. PHARMACEUTICALS,INC./RIDGEFIELD-2013-BI-40684BP

PATIENT
  Sex: Male
  Weight: 79 kg

DRUGS (7)
  1. SPIRIVA [Suspect]
     Indication: CHRONIC OBSTRUCTIVE PULMONARY DISEASE
     Dosage: 18 MCG
     Route: 055
     Dates: start: 2010, end: 2010
  2. BUMETANIDE [Concomitant]
     Indication: FLUID RETENTION
     Dosage: 2 MG
     Route: 048
     Dates: start: 2004
  3. DILTIAZEM [Concomitant]
     Indication: HYPERTENSION
     Dosage: 180 MG
     Route: 048
     Dates: start: 2004
  4. WAFARIN [Concomitant]
     Indication: AORTIC VALVE REPLACEMENT
     Route: 048
     Dates: start: 2004
  5. POTASSIUM CHLORIDE [Concomitant]
     Indication: SUPPLEMENTATION THERAPY
     Dosage: 60 MEQ
     Route: 048
     Dates: start: 2005
  6. GEMFIBROZIL [Concomitant]
     Dosage: 1200 MG
     Route: 048
     Dates: start: 2004
  7. SPRIRONOLACTONE [Concomitant]
     Indication: HYPERTENSION
     Dosage: 25 MG
     Route: 048
     Dates: start: 2004

REACTIONS (4)
  - Carotid artery occlusion [Recovered/Resolved]
  - Carotid artery occlusion [Recovered/Resolved]
  - Arthritis [Not Recovered/Not Resolved]
  - Drug ineffective [Not Recovered/Not Resolved]
